FAERS Safety Report 14805136 (Version 1)
Quarter: 2018Q2

REPORT INFORMATION
  Report Type: Spontaneous
  Country: JP (occurrence: JP)
  Receive Date: 20180425
  Receipt Date: 20180425
  Transmission Date: 20180711
  Serious: Yes (Other)
  Sender: FDA-Public Use
  Company Number: JP-OTSUKA-2018_010629

PATIENT
  Sex: Female

DRUGS (1)
  1. SAMSCA [Suspect]
     Active Substance: TOLVAPTAN
     Indication: CARDIAC FAILURE
     Dosage: 2 TABLETS, UNK
     Route: 048
     Dates: start: 201706

REACTIONS (4)
  - Delirium [Unknown]
  - Diarrhoea [Unknown]
  - Hallucination [Unknown]
  - Nausea [Unknown]
